FAERS Safety Report 9133350 (Version 1)
Quarter: 2013Q1

REPORT INFORMATION
  Report Type: Report from Study
  Country: US (occurrence: US)
  Receive Date: 20130301
  Receipt Date: 20130301
  Transmission Date: 20140127
  Serious: Yes (Hospitalization, Other)
  Sender: FDA-Public Use
  Company Number: US-ABBOTT-13P-163-1053820-00

PATIENT
  Age: 66 None
  Sex: Male
  Weight: 103.06 kg

DRUGS (3)
  1. HUMIRA [Suspect]
     Indication: PSORIATIC ARTHROPATHY
     Dates: end: 2012
  2. HUMIRA [Suspect]
     Indication: RHEUMATOID ARTHRITIS
     Dates: start: 2012, end: 20121116
  3. METHOTREXATE [Concomitant]
     Indication: PSORIATIC ARTHROPATHY
     Dates: start: 201211

REACTIONS (13)
  - Lymphadenopathy [Unknown]
  - Hypoaesthesia [Unknown]
  - Lung cancer metastatic [Unknown]
  - Dyspnoea [Unknown]
  - Paraesthesia [Unknown]
  - Cerebrovascular accident [Unknown]
  - Deep vein thrombosis [Unknown]
  - Thrombosis [Unknown]
  - Pleural effusion [Unknown]
  - Productive cough [Unknown]
  - Weight decreased [Unknown]
  - Infection [Unknown]
  - Nausea [Unknown]
